FAERS Safety Report 24249413 (Version 2)
Quarter: 2024Q4

REPORT INFORMATION
  Report Type: Spontaneous
  Country: US (occurrence: US)
  Receive Date: 20240826
  Receipt Date: 20241130
  Transmission Date: 20250115
  Serious: No
  Sender: SANOFI AVENTIS
  Company Number: US-SA-SAC20240814000152

PATIENT
  Age: 38 Year
  Sex: Female
  Weight: 74.83 kg

DRUGS (2)
  1. DUPIXENT [Suspect]
     Active Substance: DUPILUMAB
     Indication: Dermatitis atopic
     Dosage: 300 MG, QOW
     Route: 058
     Dates: start: 20240328
  2. CLOBETASOL [Concomitant]
     Active Substance: CLOBETASOL
     Indication: Pruritus

REACTIONS (3)
  - Rash pruritic [Unknown]
  - Blister [Unknown]
  - Oral herpes [Unknown]

NARRATIVE: CASE EVENT DATE: 20240101
